FAERS Safety Report 9947267 (Version 1)
Quarter: 2014Q1

REPORT INFORMATION
  Report Type: Report from Study
  Country: US (occurrence: US)
  Receive Date: 20140303
  Receipt Date: 20140303
  Transmission Date: 20141002
  Serious: No
  Sender: FDA-Public Use
  Company Number: US-ABBVIE-13P-163-1064588-00

PATIENT
  Age: 16 Year
  Sex: Male
  Weight: 61.29 kg

DRUGS (9)
  1. HUMIRA [Suspect]
     Indication: CROHN^S DISEASE
     Route: 058
     Dates: start: 201209, end: 201303
  2. HUMIRA [Suspect]
     Dates: start: 201303
  3. FISH OIL [Concomitant]
     Indication: SUPPLEMENTATION THERAPY
  4. PROBIOTICS [Concomitant]
     Indication: SUPPLEMENTATION THERAPY
  5. PROZAC [Concomitant]
     Indication: ANXIETY
  6. VITAMIN D3 [Concomitant]
     Indication: VITAMIN SUPPLEMENTATION
  7. MULTIPLE VITAMINS [Concomitant]
     Indication: VITAMIN SUPPLEMENTATION
  8. XANAX [Concomitant]
     Indication: ANXIETY
     Dates: start: 201303
  9. LUPRON DEPOT [Concomitant]
     Indication: TRANSGENDER HORMONAL THERAPY

REACTIONS (7)
  - Off label use [Not Recovered/Not Resolved]
  - Anxiety [Not Recovered/Not Resolved]
  - Injection site pain [Not Recovered/Not Resolved]
  - Abdominal pain upper [Not Recovered/Not Resolved]
  - Diarrhoea [Not Recovered/Not Resolved]
  - C-reactive protein increased [Not Recovered/Not Resolved]
  - Contusion [Not Recovered/Not Resolved]
